FAERS Safety Report 17594374 (Version 5)
Quarter: 2020Q4

REPORT INFORMATION
  Report Type: Report from Study
  Country: US (occurrence: US)
  Receive Date: 20200327
  Receipt Date: 20201015
  Transmission Date: 20210113
  Serious: Yes (Hospitalization)
  Sender: FDA-Public Use
  Company Number: NVSC2020US084682

PATIENT
  Age: 68 Year
  Sex: Male

DRUGS (2)
  1. ENTRESTO [Suspect]
     Active Substance: SACUBITRIL\VALSARTAN
     Indication: CARDIAC FAILURE
     Dosage: 50 MG, BID (24/26MG)
     Route: 048
     Dates: start: 2015
  2. ENTRESTO [Suspect]
     Active Substance: SACUBITRIL\VALSARTAN
     Dosage: 0.5 DF, BID
     Route: 065

REACTIONS (9)
  - Pyrexia [Recovered/Resolved]
  - Hyperhidrosis [Recovering/Resolving]
  - Pancreatitis [Recovering/Resolving]
  - Weight decreased [Not Recovered/Not Resolved]
  - Tremor [Recovering/Resolving]
  - Chills [Recovering/Resolving]
  - Wrong technique in product usage process [Unknown]
  - Cardiac stress test abnormal [Unknown]
  - Underdose [Unknown]

NARRATIVE: CASE EVENT DATE: 20200320
